FAERS Safety Report 6249433-1 (Version None)
Quarter: 2009Q2

REPORT INFORMATION
  Report Type: 
  Country: None (occurrence: None)
  Receive Date: 20090625
  Receipt Date: 20090625
  Transmission Date: 20091009
  Serious: No
  Sender: FDA-Public Use
  Company Number: None

PATIENT
  Age: 76 Year
  Sex: Male
  Weight: 78.0187 kg

DRUGS (1)
  1. ZICAM NASAL GEL MATRIXX INITIATIVES [Suspect]
     Indication: NASOPHARYNGITIS
     Dosage: ONCE EACH NOSTRIL EVERY FOUR HOURS NASAL
     Route: 045
     Dates: start: 20081215, end: 20081218

REACTIONS (2)
  - AGEUSIA [None]
  - ANOSMIA [None]
